FAERS Safety Report 17485959 (Version 1)
Quarter: 2020Q1

REPORT INFORMATION
  Report Type: Spontaneous
  Country: FR (occurrence: FR)
  Receive Date: 20200303
  Receipt Date: 20200303
  Transmission Date: 20200409
  Serious: Yes (Hospitalization)
  Sender: FDA-Public Use
  Company Number: FR-TEVA-2020-FR-1194008

PATIENT
  Age: 54 Year
  Sex: Male
  Weight: 65 kg

DRUGS (4)
  1. VIREAD [Suspect]
     Active Substance: TENOFOVIR DISOPROXIL FUMARATE
     Indication: HEPATITIS B VIRUS TEST POSITIVE
     Dosage: 245 MG
     Route: 048
     Dates: end: 20160711
  2. LASILIX [Suspect]
     Active Substance: FUROSEMIDE
     Indication: ORGAN FAILURE
     Route: 065
     Dates: start: 20160623, end: 20160705
  3. VANCOMYCIN [Suspect]
     Active Substance: VANCOMYCIN
     Indication: STAPHYLOCOCCAL BACTERAEMIA
     Route: 042
     Dates: start: 20160630, end: 20160707
  4. XENETIX 300 (300 MG D^IODE/ML), SOLUTION INJECTABLE [Suspect]
     Active Substance: IOBITRIDOL
     Indication: SCAN
     Dosage: 70ML ON 24/06 AND 50ML ON 30/06
     Route: 042
     Dates: start: 20160624, end: 20160630

REACTIONS (1)
  - Acute kidney injury [Recovered/Resolved]

NARRATIVE: CASE EVENT DATE: 201607
